FAERS Safety Report 24783111 (Version 1)
Quarter: 2024Q4

REPORT INFORMATION
  Report Type: Spontaneous
  Country: CN (occurrence: CN)
  Receive Date: 20241227
  Receipt Date: 20241227
  Transmission Date: 20250114
  Serious: Yes (Hospitalization, Other)
  Sender: SANOFI AVENTIS
  Company Number: CN-SA-2024SA379622

PATIENT
  Age: 84 Year
  Sex: Male
  Weight: 49 kg

DRUGS (5)
  1. CLOPIDOGREL BISULFATE [Suspect]
     Active Substance: CLOPIDOGREL BISULFATE
     Indication: Coronary artery disease
     Dosage: 75 MG, QD
     Route: 048
     Dates: start: 20230608, end: 20240526
  2. SACUBITRIL\VALSARTAN [Concomitant]
     Active Substance: SACUBITRIL\VALSARTAN
     Indication: Coronary artery disease
     Dosage: 25 MG, BID
  3. ATORVASTATIN [Concomitant]
     Active Substance: ATORVASTATIN
     Indication: Coronary artery disease
     Dosage: 10 MG
  4. SPIRONOLACTONE [Concomitant]
     Active Substance: SPIRONOLACTONE
     Indication: Coronary artery disease
     Dosage: 20 MG, QD
  5. FUROSEMIDE [Concomitant]
     Active Substance: FUROSEMIDE
     Indication: Coronary artery disease
     Dosage: 20 MG, QD

REACTIONS (4)
  - Chronic gastritis [Recovering/Resolving]
  - Large intestinal haemorrhage [Recovering/Resolving]
  - Haematochezia [Recovered/Resolved]
  - Mucosal discolouration [Recovering/Resolving]

NARRATIVE: CASE EVENT DATE: 20240101
